FAERS Safety Report 12205979 (Version 12)
Quarter: 2020Q2

REPORT INFORMATION
  Report Type: Spontaneous
  Country: US (occurrence: US)
  Receive Date: 20160323
  Receipt Date: 20200414
  Transmission Date: 20200713
  Serious: Yes (Hospitalization, Other)
  Sender: FDA-Public Use
  Company Number: US-BIOMARINAP-US-2015-108621

PATIENT
  Age: 3 Year
  Sex: Male
  Weight: 20.8 kg

DRUGS (5)
  1. BENADRYL [Concomitant]
     Active Substance: DIPHENHYDRAMINE HYDROCHLORIDE
     Indication: PRODUCT USED FOR UNKNOWN INDICATION
  2. ALDURAZYME [Suspect]
     Active Substance: LARONIDASE
     Indication: MUCOPOLYSACCHARIDOSIS I
     Dosage: 11.6 MILLIGRAM, QW
     Route: 041
     Dates: start: 20130916
  3. TYLENOL [Concomitant]
     Active Substance: ACETAMINOPHEN
     Indication: PRODUCT USED FOR UNKNOWN INDICATION
  4. ALDURAZYME [Suspect]
     Active Substance: LARONIDASE
     Dosage: 14.5 MILLIGRAM, QW
     Route: 041
     Dates: start: 20160412
  5. ALDURAZYME [Suspect]
     Active Substance: LARONIDASE
     Dosage: 11.6 MG, QW
     Route: 041
     Dates: start: 20160401

REACTIONS (22)
  - Middle ear effusion [Recovered/Resolved]
  - Vascular device infection [Recovering/Resolving]
  - Hip arthroplasty [Unknown]
  - Ear infection [Recovered/Resolved]
  - Thrombosis in device [Recovered/Resolved]
  - Hospitalisation [Unknown]
  - Dehydration [Recovered/Resolved]
  - Cellulitis [Recovering/Resolving]
  - Spinal cord compression [Unknown]
  - Tympanic membrane disorder [Unknown]
  - Hypoacusis [Unknown]
  - Unevaluable event [Unknown]
  - Pneumonia [Recovered/Resolved]
  - Osteotomy [Unknown]
  - Henoch-Schonlein purpura [Recovering/Resolving]
  - Ear disorder [Unknown]
  - Pyrexia [Recovered/Resolved]
  - Pyrexia [Recovering/Resolving]
  - Viral infection [Unknown]
  - Abscess [Recovering/Resolving]
  - Sleep apnoea syndrome [Recovered/Resolved]
  - Malaise [Unknown]

NARRATIVE: CASE EVENT DATE: 2016
